FAERS Safety Report 11808164 (Version 2)
Quarter: 2016Q2

REPORT INFORMATION
  Report Type: Spontaneous
  Country: BR (occurrence: BR)
  Receive Date: 20151207
  Receipt Date: 20160407
  Transmission Date: 20160815
  Serious: Yes (Hospitalization)
  Sender: FDA-Public Use
  Company Number: BR-JNJFOC-20151203144

PATIENT
  Age: 44 Year
  Sex: Female

DRUGS (1)
  1. REMICADE [Suspect]
     Active Substance: INFLIXIMAB
     Indication: CROHN^S DISEASE
     Route: 042
     Dates: start: 201310

REACTIONS (5)
  - Skin lesion [Recovered/Resolved]
  - Inflammation [Unknown]
  - Weight fluctuation [Not Recovered/Not Resolved]
  - Anal fistula [Unknown]
  - Abdominal hernia [Unknown]

NARRATIVE: CASE EVENT DATE: 201509
